FAERS Safety Report 4918659-9 (Version None)
Quarter: 2006Q1

REPORT INFORMATION
  Report Type: 
  Country: None (occurrence: None)
  Receive Date: 20060216
  Receipt Date: 20060208
  Transmission Date: 20060701
  Serious: Yes (Other)
  Sender: FDA-Public Use
  Company Number: 200610754BWH

PATIENT

DRUGS (1)
  1. NEXAVAR [Suspect]
     Dosage: ORAL
     Route: 048

REACTIONS (2)
  - RASH [None]
  - RENAL FAILURE [None]
